FAERS Safety Report 7801344-3 (Version None)
Quarter: 2011Q4

REPORT INFORMATION
  Report Type: 
  Country: None (occurrence: None)
  Receive Date: 20111006
  Receipt Date: 20111006
  Transmission Date: 20120403
  Serious: Yes (Hospitalization)
  Sender: FDA-Public Use
  Company Number: None

PATIENT
  Age: 58 Year
  Sex: Male
  Weight: 104.3 kg

DRUGS (17)
  1. ERBITUX [Suspect]
     Indication: COLON CANCER
     Dosage: 50MG RECEIVED IV  RECENT
     Route: 042
  2. ERBITUX [Suspect]
     Indication: METASTASES TO LUNG
     Dosage: 50MG RECEIVED IV  RECENT
     Route: 042
  3. FLONASE [Concomitant]
  4. OSTEO-BI FLEX [Concomitant]
  5. IMODIUM MULTI-SYMPTOM RELIEF [Concomitant]
  6. MILK THISTLE [Concomitant]
  7. COENZYME Q10 [Concomitant]
  8. COMPAZINE [Concomitant]
  9. VIT D [Concomitant]
  10. SALINE NS [Concomitant]
  11. LOMOTIL [Concomitant]
  12. M.V.I. [Concomitant]
  13. AMLODIPINE [Concomitant]
  14. ALLEGRA [Concomitant]
  15. LOPRESSOR [Concomitant]
  16. OMEPRAZOLE [Concomitant]
  17. SYMBICORT [Concomitant]

REACTIONS (1)
  - ANAPHYLACTIC REACTION [None]
